FAERS Safety Report 5264277-5 (Version None)
Quarter: 2007Q1

REPORT INFORMATION
  Report Type: 
  Country: None (occurrence: None)
  Receive Date: 20070309
  Receipt Date: 20070226
  Transmission Date: 20070707
  Serious: Yes (Death, Hospitalization, Other)
  Sender: FDA-Public Use
  Company Number: 2007-00397

PATIENT
  Age: 78 Year
  Sex: Male

DRUGS (1)
  1. VELCADE [Suspect]
     Indication: MULTIPLE MYELOMA
     Dosage: 1.00 MG/M2, UNK, INTRAVENOUS
     Route: 042

REACTIONS (4)
  - FALL [None]
  - HEAD INJURY [None]
  - NEUROPATHY [None]
  - SUBDURAL HAEMATOMA [None]
